FAERS Safety Report 7701007-9 (Version None)
Quarter: 2011Q3

REPORT INFORMATION
  Report Type: 
  Country: None (occurrence: None)
  Receive Date: 20110822
  Receipt Date: 20110815
  Transmission Date: 20111222
  Serious: Yes (Hospitalization)
  Sender: FDA-Public Use
  Company Number: CA-JNJFOC-20110705196

PATIENT
  Sex: Male
  Weight: 83 kg

DRUGS (19)
  1. ASAPHEN [Concomitant]
     Route: 065
     Dates: start: 20110603
  2. LIPITOR [Concomitant]
     Route: 065
     Dates: start: 20110603
  3. METOPROLOL SUCCINATE [Concomitant]
     Route: 065
     Dates: start: 20110603
  4. ALENDRONATE SODIUM [Concomitant]
     Route: 065
     Dates: start: 20110603
  5. REMICADE [Suspect]
     Indication: RHEUMATOID ARTHRITIS
     Dosage: FOR 52 WEEKS  DOSE STRENGTH: 100MG/VIAL
     Route: 042
     Dates: start: 20040501, end: 20110711
  6. PERINDOPRIL ERBUMINE [Concomitant]
     Route: 065
     Dates: start: 20110603
  7. CELEBREX [Concomitant]
     Route: 065
     Dates: start: 20110603
  8. NITROGLYCERIN [Concomitant]
     Route: 065
     Dates: start: 20110603
  9. CLOBETASOL PROPIONATE [Concomitant]
     Route: 065
     Dates: start: 20110430
  10. NEXIUM [Concomitant]
     Route: 065
     Dates: start: 20110603
  11. PREDNISONE [Concomitant]
     Route: 065
     Dates: start: 20110503
  12. ARAVA [Concomitant]
     Route: 065
     Dates: start: 20110603
  13. LYRICA [Concomitant]
     Route: 065
     Dates: start: 20110603
  14. AMOXICILLIN AND CLAVULANATE POTASSIUM [Concomitant]
     Route: 065
     Dates: start: 20110603
  15. PLAVIX [Concomitant]
     Route: 065
     Dates: start: 20110603
  16. AVELOX [Concomitant]
     Route: 065
  17. SYNTHROID [Concomitant]
     Dosage: 0.075 (UNITS UNSPECIFIED)
     Route: 065
     Dates: start: 20110603
  18. CALCIUM+VITAMIN D [Concomitant]
     Route: 065
     Dates: start: 20110603
  19. SPIRIVA [Concomitant]
     Route: 048
     Dates: start: 20110603

REACTIONS (1)
  - MYOCARDIAL INFARCTION [None]
